FAERS Safety Report 23554065 (Version 1)
Quarter: 2024Q1

REPORT INFORMATION
  Report Type: Spontaneous
  Country: NL (occurrence: None)
  Receive Date: 20240222
  Receipt Date: 20240222
  Transmission Date: 20240409
  Serious: Yes (Other)
  Sender: FDA-Public Use
  Company Number: 2024A041503

PATIENT
  Age: 83 Year
  Sex: Female
  Weight: 55 kg

DRUGS (5)
  1. OMEPRAZOLE [Suspect]
     Active Substance: OMEPRAZOLE
     Dosage: UNK
  2. ROSUVASTATIN [Suspect]
     Active Substance: ROSUVASTATIN
     Dosage: UNK
  3. OXAZEPAM [Suspect]
     Active Substance: OXAZEPAM
     Indication: Back pain
     Dosage: UNK
  4. BUPRENORPHINE [Suspect]
     Active Substance: BUPRENORPHINE
     Route: 062
  5. ROMOSOZUMAB [Suspect]
     Active Substance: ROMOSOZUMAB
     Route: 058

REACTIONS (7)
  - Spinal fracture [Unknown]
  - Back pain [Unknown]
  - Radius fracture [Unknown]
  - Fall [Unknown]
  - Wrist fracture [Recovered/Resolved]
  - Weight decreased [Unknown]
  - Osteoporosis [Unknown]
